FAERS Safety Report 15679075 (Version 2)
Quarter: 2019Q1

REPORT INFORMATION
  Report Type: Report from Study
  Country: None (occurrence: GB)
  Receive Date: 20181203
  Receipt Date: 20190106
  Transmission Date: 20190417
  Serious: Yes (Hospitalization)
  Sender: FDA-Public Use
  Company Number: GB-ABBVIE-18K-167-2575500-00

PATIENT
  Age: 50 Year
  Sex: Male
  Weight: 76.85 kg

DRUGS (2)
  1. HUMIRA [Suspect]
     Active Substance: ADALIMUMAB
     Indication: PSORIASIS
     Route: 058
     Dates: start: 20151205
  2. RAMIPRIL. [Concomitant]
     Active Substance: RAMIPRIL
     Indication: PRODUCT USED FOR UNKNOWN INDICATION
     Dates: start: 20150701

REACTIONS (6)
  - Pulmonary mass [Unknown]
  - Herpes zoster [Unknown]
  - Blister [Unknown]
  - Varicella zoster virus infection [Unknown]
  - Staphylococcus test positive [Unknown]
  - Rash maculo-papular [Unknown]

NARRATIVE: CASE EVENT DATE: 2018
